FAERS Safety Report 10192462 (Version 2)
Quarter: 2014Q2

REPORT INFORMATION
  Report Type: Spontaneous
  Country: US (occurrence: US)
  Receive Date: 20140523
  Receipt Date: 20140625
  Transmission Date: 20141212
  Serious: Yes (Hospitalization)
  Sender: FDA-Public Use
  Company Number: US-GILEAD-2014-0103121

PATIENT
  Sex: Female

DRUGS (4)
  1. LETAIRIS [Suspect]
     Indication: PRODUCT USED FOR UNKNOWN INDICATION
     Dosage: 10 MG, QD
     Route: 065
     Dates: start: 20140429
  2. VELETRI [Concomitant]
  3. ADCIRCA [Concomitant]
  4. TYVASO [Concomitant]

REACTIONS (5)
  - Hypotension [Unknown]
  - Gait disturbance [Unknown]
  - Oedema [Unknown]
  - Oedema peripheral [Unknown]
  - Dizziness [Unknown]
